FAERS Safety Report 5088490-5 (Version None)
Quarter: 2006Q3

REPORT INFORMATION
  Report Type: 
  Country: None (occurrence: None)
  Receive Date: 20060823
  Receipt Date: 20060823
  Transmission Date: 20061208
  Serious: No
  Sender: FDA-Public Use
  Company Number: None

PATIENT
  Age: 61 Year
  Sex: Female
  Weight: 83.0083 kg

DRUGS (6)
  1. PREGABALIN 75 MG [Suspect]
     Indication: INVESTIGATION
     Dosage: 75 MG BID PO
     Route: 048
     Dates: start: 20060713
  2. PREGABALIN 150 MG [Suspect]
     Indication: INVESTIGATION
     Dosage: 150 MG BID PO
     Route: 048
     Dates: start: 20060718
  3. NEXIUM [Concomitant]
  4. ASPIRIN [Concomitant]
  5. POTASSIUM [Concomitant]
  6. METFORMIN HCL [Concomitant]

REACTIONS (3)
  - DIZZINESS [None]
  - HALLUCINATION [None]
  - SOMNOLENCE [None]
